FAERS Safety Report 7750659-6 (Version None)
Quarter: 2011Q3

REPORT INFORMATION
  Report Type: 
  Country: None (occurrence: None)
  Receive Date: 20110914
  Receipt Date: 20110906
  Transmission Date: 20111222
  Serious: Yes (Hospitalization)
  Sender: FDA-Public Use
  Company Number: ZA-GLAXOSMITHKLINE-B0745332A

PATIENT
  Age: 52 Year
  Sex: Male

DRUGS (2)
  1. YELLOW FEVER VACCINE [Concomitant]
  2. ATOVAQUONE [Suspect]
     Indication: MALARIA PROPHYLAXIS
     Route: 065

REACTIONS (10)
  - HEPATIC FAILURE [None]
  - RENAL FAILURE [None]
  - ALANINE AMINOTRANSFERASE INCREASED [None]
  - GASTROINTESTINAL DISORDER [None]
  - ASPARTATE AMINOTRANSFERASE INCREASED [None]
  - PYREXIA [None]
  - PLATELET COUNT DECREASED [None]
  - SEPSIS [None]
  - DYSPNOEA [None]
  - VOMITING [None]
